FAERS Safety Report 11747923 (Version 2)
Quarter: 2015Q4

REPORT INFORMATION
  Report Type: Spontaneous
  Country: US (occurrence: US)
  Receive Date: 20151117
  Receipt Date: 20151117
  Transmission Date: 20160304
  Serious: Yes (Hospitalization, Disabling, Other)
  Sender: FDA-Public Use
  Company Number: US-DEP_02389_2014

PATIENT
  Age: 36 Year
  Sex: Female
  Weight: 53 kg

DRUGS (9)
  1. VITAMIN D [Concomitant]
     Active Substance: CHOLECALCIFEROL
     Indication: COMPLEX REGIONAL PAIN SYNDROME
     Dosage: DF
  2. VITAMIN E [Concomitant]
     Active Substance: .ALPHA.-TOCOPHEROL
     Indication: COMPLEX REGIONAL PAIN SYNDROME
     Dosage: DF
  3. GRALISE [Suspect]
     Active Substance: GABAPENTIN
     Indication: COMPLEX REGIONAL PAIN SYNDROME
     Dosage: AT NIGHT WITH MEAL
     Route: 048
     Dates: start: 20130710, end: 20130720
  4. HYDROCODONE [Concomitant]
     Active Substance: HYDROCODONE
     Indication: BREAKTHROUGH PAIN
     Dosage: PRN
     Route: 048
  5. ZIPSOR [Concomitant]
     Active Substance: DICLOFENAC POTASSIUM
     Dosage: DF
  6. KETAMINE [Concomitant]
     Active Substance: KETAMINE
     Indication: PAIN
     Dosage: DF
  7. XANAX [Concomitant]
     Active Substance: ALPRAZOLAM
     Indication: PANIC ATTACK
     Dosage: PRN
     Route: 048
     Dates: start: 2011
  8. GRALISE [Suspect]
     Active Substance: GABAPENTIN
     Indication: OFF LABEL USE
     Dosage: AT NIGHT WITH MEAL
     Route: 048
     Dates: start: 20130710, end: 20130720
  9. XANAX [Concomitant]
     Active Substance: ALPRAZOLAM
     Indication: COMPLEX REGIONAL PAIN SYNDROME
     Dosage: PRN
     Route: 048
     Dates: start: 2011

REACTIONS (39)
  - Weight decreased [Recovered/Resolved]
  - Gallbladder disorder [Recovering/Resolving]
  - Hepatobiliary disease [Unknown]
  - Bedridden [Recovered/Resolved]
  - Diarrhoea [Recovered/Resolved]
  - Panic attack [Recovered/Resolved]
  - Asthenia [Not Recovered/Not Resolved]
  - Drug dose titration not performed [Recovered/Resolved]
  - Toxicity to various agents [Unknown]
  - Impaired work ability [Not Recovered/Not Resolved]
  - Multi-organ failure [Recovered/Resolved]
  - Mental disorder [Recovered/Resolved]
  - Blood pressure increased [Recovered/Resolved]
  - Dyspepsia [Recovered/Resolved]
  - Vomiting [Recovered/Resolved]
  - Overdose [Recovered/Resolved]
  - Insomnia [Recovered/Resolved]
  - Withdrawal syndrome [Recovered/Resolved]
  - Blindness [Recovered/Resolved]
  - Pain [Not Recovered/Not Resolved]
  - Hepatic enzyme abnormal [Unknown]
  - Hepatic steatosis [Not Recovered/Not Resolved]
  - Fatigue [Not Recovered/Not Resolved]
  - Biliary dilatation [None]
  - Memory impairment [Recovered/Resolved]
  - Dehydration [Recovered/Resolved]
  - Pancreatitis [Not Recovered/Not Resolved]
  - Ill-defined disorder [Not Recovered/Not Resolved]
  - Drug hypersensitivity [Unknown]
  - Feeding disorder [Recovered/Resolved]
  - Sepsis [Recovered/Resolved]
  - Haematemesis [Unknown]
  - Fluid retention [Unknown]
  - Sphincter of Oddi dysfunction [Unknown]
  - Mental impairment [None]
  - Drug effect decreased [None]
  - Malabsorption [Unknown]
  - Nausea [Not Recovered/Not Resolved]
  - Executive dysfunction [None]

NARRATIVE: CASE EVENT DATE: 201307
